FAERS Safety Report 7157174-1 (Version None)
Quarter: 2010Q4

REPORT INFORMATION
  Report Type: 
  Country: None (occurrence: None)
  Receive Date: 20101214
  Receipt Date: 20100121
  Transmission Date: 20110411
  Serious: No
  Sender: FDA-Public Use
  Company Number: US-ASTRAZENECA-2009SE33004

PATIENT
  Age: 64 Year
  Sex: Male
  Weight: 55.8 kg

DRUGS (5)
  1. CRESTOR [Suspect]
     Indication: BLOOD CHOLESTEROL
     Route: 048
     Dates: start: 20091206
  2. LISINOPRIL [Concomitant]
  3. ASPIRIN [Concomitant]
     Indication: CARDIOVASCULAR DISORDER
  4. METOPROLOL [Concomitant]
     Indication: CARDIOVASCULAR DISORDER
  5. PLAVIX [Concomitant]
     Indication: CARDIOVASCULAR DISORDER

REACTIONS (4)
  - DYSPEPSIA [None]
  - ERUCTATION [None]
  - FLATULENCE [None]
  - GASTROOESOPHAGEAL REFLUX DISEASE [None]
